FAERS Safety Report 10033908 (Version 3)
Quarter: 2014Q2

REPORT INFORMATION
  Report Type: Report from Study
  Country: CL (occurrence: CL)
  Receive Date: 20140325
  Receipt Date: 20140404
  Transmission Date: 20141212
  Serious: Yes (Other)
  Sender: FDA-Public Use
  Company Number: CL-ROCHE-1359478

PATIENT
  Age: 43 Year
  Sex: Female
  Weight: 73 kg

DRUGS (5)
  1. HERCEPTIN [Suspect]
     Indication: BREAST CANCER
     Dosage: ON 03/FEB/2014, SHE RECEIVED ANOTHER DOSE OF TRASTUZUMAB
     Route: 042
     Dates: start: 20131014, end: 20140312
  2. XELODA [Suspect]
     Indication: BREAST CANCER
     Dosage: 14 DAYS PER CYCLE?ON 16/FEB/2014, LAST TABLET OF CAPECITABINE
     Route: 048
     Dates: start: 20131014, end: 20140312
  3. TRAMADOL [Concomitant]
     Indication: LYMPHOEDEMA
     Route: 048
     Dates: start: 20130930
  4. CHLORPHENAMINE [Concomitant]
     Indication: LYMPHOEDEMA
     Route: 048
     Dates: start: 20130930
  5. PARACETAMOL [Concomitant]
     Indication: LYMPHOEDEMA
     Route: 048
     Dates: start: 20130930

REACTIONS (9)
  - Inflammation [Not Recovered/Not Resolved]
  - Breast ulceration [Not Recovered/Not Resolved]
  - Metastases to breast [Not Recovered/Not Resolved]
  - Myalgia [Not Recovered/Not Resolved]
  - Peripheral swelling [Not Recovered/Not Resolved]
  - Fall [Unknown]
  - Mobility decreased [Unknown]
  - Hypoaesthesia [Unknown]
  - Asthenia [Unknown]
